FAERS Safety Report 7107389-3 (Version None)
Quarter: 2010Q4

REPORT INFORMATION
  Report Type: 
  Country: None (occurrence: None)
  Receive Date: 20101111
  Receipt Date: 20101111
  Transmission Date: 20110411
  Serious: Yes (Other)
  Sender: FDA-Public Use
  Company Number: None

PATIENT
  Age: 66 Year
  Sex: Male
  Weight: 96.2533 kg

DRUGS (2)
  1. ROSUVASTATIN CALCIUM [Suspect]
     Indication: BLOOD CHOLESTEROL
     Dosage: 40MG QHS PO
     Route: 048
     Dates: start: 20091229, end: 20101009
  2. ROSUVASTATIN CALCIUM [Suspect]
     Indication: DYSLIPIDAEMIA
     Dosage: 40MG QHS PO
     Route: 048
     Dates: start: 20091229, end: 20101009

REACTIONS (1)
  - PRURITUS [None]
